FAERS Safety Report 17994833 (Version 1)
Quarter: 2020Q3

REPORT INFORMATION
  Report Type: Spontaneous
  Country: US (occurrence: US)
  Receive Date: 20200708
  Receipt Date: 20200708
  Transmission Date: 20201103
  Serious: No
  Sender: FDA-Public Use
  Company Number: None

PATIENT
  Age: 71 Year
  Sex: Male
  Weight: 57.6 kg

DRUGS (7)
  1. METOPROLOL. [Concomitant]
     Active Substance: METOPROLOL
  2. LOVASTATIN. [Concomitant]
     Active Substance: LOVASTATIN
  3. PROCHLORPERAZINE. [Concomitant]
     Active Substance: PROCHLORPERAZINE
  4. IRON [Concomitant]
     Active Substance: IRON
  5. ZOFRAN [Concomitant]
     Active Substance: ONDANSETRON HYDROCHLORIDE
  6. NEULASTA [Suspect]
     Active Substance: PEGFILGRASTIM
     Dosage: ?          OTHER FREQUENCY:EVERY 14 DAYS;?
     Route: 048
  7. BENZONATATE. [Concomitant]
     Active Substance: BENZONATATE

REACTIONS (1)
  - Hospice care [None]

NARRATIVE: CASE EVENT DATE: 20200708
